FAERS Safety Report 7767280-6 (Version None)
Quarter: 2011Q3

REPORT INFORMATION
  Report Type: 
  Country: None (occurrence: None)
  Receive Date: 20110922
  Receipt Date: 20110413
  Transmission Date: 20111222
  Serious: No
  Sender: FDA-Public Use
  Company Number: US-ASTRAZENECA-2010SE38924

PATIENT
  Age: 82 Year
  Sex: Male
  Weight: 74.8 kg

DRUGS (12)
  1. NORCO [Concomitant]
  2. SEROQUEL XR [Suspect]
     Route: 048
     Dates: start: 20101001
  3. SEROQUEL XR [Suspect]
     Indication: SLEEP DISORDER
     Route: 048
     Dates: start: 20090101, end: 20101001
  4. PROZAC [Concomitant]
  5. SEROQUEL XR [Suspect]
     Route: 048
     Dates: start: 20101001
  6. SIMVASTATIN [Concomitant]
  7. SEROQUEL XR [Suspect]
     Indication: DEPRESSION
     Route: 048
     Dates: start: 20090101, end: 20101001
  8. TENORMIN [Concomitant]
  9. HYDROCODONE [Concomitant]
  10. TRIAMTERENE [Concomitant]
  11. ATENOLOL [Concomitant]
  12. TERAZOSIN HCL [Concomitant]
     Dates: end: 20110301

REACTIONS (5)
  - DEPRESSION [None]
  - DIZZINESS [None]
  - INCORRECT DOSE ADMINISTERED [None]
  - SOMNOLENCE [None]
  - DRUG DOSE OMISSION [None]
